FAERS Safety Report 8292268-9 (Version None)
Quarter: 2012Q2

REPORT INFORMATION
  Report Type: 
  Country: None (occurrence: None)
  Receive Date: 20120413
  Receipt Date: 20120404
  Transmission Date: 20120825
  Serious: Yes (Other)
  Sender: FDA-Public Use
  Company Number: 2012SP018009

PATIENT
  Age: 48 Year
  Sex: Male
  Weight: 90 kg

DRUGS (20)
  1. ACYCLOVIR [Suspect]
     Indication: PRODUCT USED FOR UNKNOWN INDICATION
     Dosage: 500 MG;TID;IV
     Route: 042
     Dates: start: 20110911, end: 20110913
  2. HIBOR (HEPARIN SODIUM /00027704/) [Suspect]
     Indication: PRODUCT USED FOR UNKNOWN INDICATION
     Dosage: 2500 IU;QD;SC
     Route: 058
     Dates: start: 20110907, end: 20110930
  3. ABBOKINASE [Suspect]
     Indication: PRODUCT USED FOR UNKNOWN INDICATION
     Dosage: 100 KIU;QD
     Dates: start: 20110915, end: 20110915
  4. OMEPRAZOLE [Suspect]
     Indication: PRODUCT USED FOR UNKNOWN INDICATION
     Dosage: 20 MG;QD;PO
     Route: 048
     Dates: start: 20110825, end: 20111007
  5. ALLOPURINOL [Suspect]
     Indication: PRODUCT USED FOR UNKNOWN INDICATION
     Dosage: 300 MG;QD;PO
     Route: 048
     Dates: start: 20110825, end: 20110908
  6. ENOXAPARIN SODIUM [Suspect]
     Indication: PRODUCT USED FOR UNKNOWN INDICATION
     Dosage: 20 MG;QD;SC
     Route: 058
     Dates: start: 20110825, end: 20110826
  7. MEROPENEM [Suspect]
     Indication: PRODUCT USED FOR UNKNOWN INDICATION
     Dosage: 1 MG;TID;IV
     Route: 042
     Dates: start: 20110905, end: 20110914
  8. LEVOFLOXACINE (LEVOFLOXACIN) [Suspect]
     Indication: PRODUCT USED FOR UNKNOWN INDICATION
     Dosage: 500 MG;QD;PO
     Route: 048
     Dates: start: 20110918, end: 20110928
  9. ORBENIN (CLOXACILLIN SODIUM) [Suspect]
     Indication: PRODUCT USED FOR UNKNOWN INDICATION
     Dosage: 1000 MG;QID;PO
     Route: 048
     Dates: start: 20110831, end: 20110916
  10. DUPHALAC [Suspect]
     Indication: PRODUCT USED FOR UNKNOWN INDICATION
     Dosage: 10 GM;QD;PO
     Route: 048
     Dates: start: 20110831, end: 20110914
  11. TARGOCID [Suspect]
     Indication: PRODUCT USED FOR UNKNOWN INDICATION
     Dosage: 400 MG;QD;IV
     Route: 042
     Dates: start: 20110906, end: 20110919
  12. POLARAMINE [Suspect]
     Indication: PRODUCT USED FOR UNKNOWN INDICATION
     Dosage: 12 MG;PRN;PO
     Route: 048
     Dates: start: 20110916, end: 20110922
  13. AMBISOME [Suspect]
     Indication: PRODUCT USED FOR UNKNOWN INDICATION
     Dosage: 250 MG;QD;IV
     Route: 042
     Dates: start: 20110916, end: 20110926
  14. NOXAFIL [Suspect]
     Indication: PRODUCT USED FOR UNKNOWN INDICATION
     Dosage: PO
     Route: 048
     Dates: start: 20110902, end: 20110917
  15. ACETAMINOPHEN [Suspect]
     Indication: PRODUCT USED FOR UNKNOWN INDICATION
     Dosage: 1 GM;TID;IV
     Route: 042
     Dates: start: 20110825, end: 20110908
  16. FUROSEMIDE [Suspect]
     Indication: PRODUCT USED FOR UNKNOWN INDICATION
     Dosage: 20 MG;QD;IV
     Route: 042
     Dates: start: 20110908, end: 20110926
  17. CUBICIN [Suspect]
     Indication: PRODUCT USED FOR UNKNOWN INDICATION
     Dosage: 350 MG;QD;IV
     Route: 042
     Dates: start: 20110910, end: 20110914
  18. MAXIPIME [Suspect]
     Indication: PRODUCT USED FOR UNKNOWN INDICATION
     Dosage: 1 GM;TID;IV
     Route: 042
     Dates: start: 20110825, end: 20110903
  19. TAZOCEL (PIP/TAZO) [Suspect]
     Indication: PRODUCT USED FOR UNKNOWN INDICATION
     Dosage: 1 GM;QID;IV
     Route: 042
     Dates: start: 20110914, end: 20110919
  20. VESANOID [Suspect]
     Indication: ACUTE PROMYELOCYTIC LEUKAEMIA
     Dosage: 50 MG;BID;PO
     Route: 048
     Dates: start: 20110826, end: 20111007

REACTIONS (2)
  - DRUG INTERACTION [None]
  - MYOSITIS [None]
